FAERS Safety Report 4447151-3 (Version None)
Quarter: 2004Q3

REPORT INFORMATION
  Report Type: 
  Country: None (occurrence: None)
  Receive Date: 20040813
  Receipt Date: 20040503
  Transmission Date: 20050211
  Serious: No
  Sender: FDA-Public Use
  Company Number: S04-USA-02963-01

PATIENT
  Age: 75 Year
  Sex: Female

DRUGS (4)
  1. NAMENDA [Suspect]
     Indication: DEMENTIA
     Dosage: 5 MG QD PO
     Route: 048
     Dates: start: 20040329, end: 20040401
  2. ARICEPT [Suspect]
     Indication: DEMENTIA
     Dosage: 10 MG QD
     Dates: start: 20010101, end: 20040403
  3. TRAZODONE [Concomitant]
  4. ZOLOFT [Concomitant]

REACTIONS (3)
  - DELUSION [None]
  - DEMENTIA [None]
  - FALL [None]
